FAERS Safety Report 22297843 (Version 4)
Quarter: 2023Q2

REPORT INFORMATION
  Report Type: Spontaneous
  Country: US (occurrence: None)
  Receive Date: 20230509
  Receipt Date: 20230630
  Transmission Date: 20230721
  Serious: Yes (Other)
  Sender: FDA-Public Use
  Company Number: US-ROCHE-3344988

PATIENT

DRUGS (2)
  1. VABYSMO [Suspect]
     Active Substance: FARICIMAB-SVOA
     Indication: Neovascular age-related macular degeneration
     Route: 065
  2. LUCENTIS [Suspect]
     Active Substance: RANIBIZUMAB
     Indication: Neovascular age-related macular degeneration
     Route: 065

REACTIONS (7)
  - Non-infectious endophthalmitis [Unknown]
  - Blindness [Unknown]
  - Off label use [Unknown]
  - Keratosis pilaris [Unknown]
  - Endophthalmitis [Unknown]
  - Product contamination [Unknown]
  - Suspected transmission of an infectious agent via product [Unknown]
